FAERS Safety Report 22314480 (Version 7)
Quarter: 2024Q1

REPORT INFORMATION
  Report Type: Report from Study
  Country: GB (occurrence: GB)
  Receive Date: 20230512
  Receipt Date: 20240228
  Transmission Date: 20240409
  Serious: Yes (Hospitalization, Other)
  Sender: FDA-Public Use
  Company Number: GB-ROCHE-3180009

PATIENT
  Age: 59 Year
  Weight: 51 kg

DRUGS (11)
  1. VINCRISTINE SULFATE [Suspect]
     Active Substance: VINCRISTINE SULFATE
     Indication: Follicular lymphoma
     Dosage: ON 17JUN2022, LAST DOSE OF STUDY DRUG
     Route: 065
     Dates: start: 20211111, end: 20220617
  2. CYCLOPHOSPHAMIDE [Suspect]
     Active Substance: CYCLOPHOSPHAMIDE
     Indication: Follicular lymphoma
     Dosage: ON 17JUN2022, LAST DOSE OF STUDY DRUG
     Route: 065
     Dates: start: 20211111, end: 20220617
  3. LENALIDOMIDE [Suspect]
     Active Substance: LENALIDOMIDE
     Indication: Follicular lymphoma
     Dosage: ONCE DAILY FOR 1 - 21 DAYS. ON 26MAR2023 LAST DOSE OF DRUG ADMINISTERED
     Route: 048
     Dates: start: 20220929, end: 20230326
  4. LENALIDOMIDE [Suspect]
     Active Substance: LENALIDOMIDE
     Dosage: 3 MG, 1X/DAY, CUMULATIVE DOSE: 800 MG
  5. LENALIDOMIDE [Suspect]
     Active Substance: LENALIDOMIDE
     Dosage: UNK
  6. OBINUTUZUMAB [Suspect]
     Active Substance: OBINUTUZUMAB
     Indication: Follicular lymphoma
     Dosage: 1000 MG (EVERY 8 WEEKS) ON 17JUN2022, LAST DOSE/ON 05MAR2023, LAST DOSE PRIOR TO EVENT
     Route: 042
     Dates: start: 20211111, end: 20230305
  7. OBINUTUZUMAB [Suspect]
     Active Substance: OBINUTUZUMAB
     Dosage: 1000 MG, CYCLIC (ONCE IN 8 WEEK (ON 17/JUN/2022, THE PATIENT RECEIVED LAST DOSE OF STUDY DRUG)
     Route: 042
     Dates: start: 20211111, end: 20220617
  8. PREDNISONE [Suspect]
     Active Substance: PREDNISONE
     Indication: Follicular lymphoma
     Dosage: ON 17JUN2022, LAST DOSE OF STUDY DRUG
     Route: 065
     Dates: start: 20211111, end: 20220617
  9. PREDNISONE [Suspect]
     Active Substance: PREDNISONE
     Dosage: UNK
     Dates: start: 20220617
  10. PIPERACILLIN SODIUM\TAZOBACTAM SODIUM [Concomitant]
     Active Substance: PIPERACILLIN SODIUM\TAZOBACTAM SODIUM
     Dosage: 4.5 G (PERSISTENT 1 WEEK; START DATE: 27MAR2023, INTRAVENOUS DRIP)
     Route: 042
     Dates: start: 20230327
  11. PIPERACILLIN SODIUM\TAZOBACTAM SODIUM [Concomitant]
     Active Substance: PIPERACILLIN SODIUM\TAZOBACTAM SODIUM
     Dosage: 4.5 G
     Route: 042
     Dates: start: 20220820

REACTIONS (7)
  - Neutropenic sepsis [Recovering/Resolving]
  - Malaise [Unknown]
  - Lethargy [Unknown]
  - C-reactive protein increased [Unknown]
  - Neutropenia [Recovering/Resolving]
  - COVID-19 [Recovered/Resolved]
  - Pneumonia [Unknown]

NARRATIVE: CASE EVENT DATE: 20220820
